FAERS Safety Report 4596577-6 (Version None)
Quarter: 2005Q1

REPORT INFORMATION
  Report Type: 
  Country: None (occurrence: None)
  Receive Date: 20050228
  Receipt Date: 20050214
  Transmission Date: 20050727
  Serious: Yes (Life-Threatening)
  Sender: FDA-Public Use
  Company Number: 2005-BP-02049NB

PATIENT
  Age: 86 Year
  Sex: Female

DRUGS (2)
  1. MOBIC [Suspect]
     Indication: SPINAL OSTEOARTHRITIS
     Dosage: 10 MG (10 MG0 PO
     Route: 048
     Dates: start: 20050114, end: 20050208
  2. SELBEX (TEPRENONE) (KAH) [Concomitant]

REACTIONS (1)
  - GASTRIC ULCER HAEMORRHAGE [None]
